FAERS Safety Report 23598395 (Version 2)
Quarter: 2025Q1

REPORT INFORMATION
  Report Type: Spontaneous
  Country: ES (occurrence: ES)
  Receive Date: 20240305
  Receipt Date: 20250129
  Transmission Date: 20250409
  Serious: Yes (Hospitalization, Other)
  Sender: SANDOZ
  Company Number: ES-SANDOZ-SDZ2024ES012026

PATIENT
  Age: 31 Year
  Sex: Male

DRUGS (2)
  1. ADALIMUMAB [Suspect]
     Active Substance: ADALIMUMAB
     Indication: Proctitis ulcerative
     Route: 058
  2. IMURAN [Suspect]
     Active Substance: AZATHIOPRINE
     Indication: Proctitis ulcerative
     Route: 065

REACTIONS (5)
  - Large intestinal ulcer [Unknown]
  - Epstein Barr virus positive mucocutaneous ulcer [Unknown]
  - Rectal ulcer [Unknown]
  - Proctitis ulcerative [Recovering/Resolving]
  - Epstein-Barr virus infection [Recovering/Resolving]
